FAERS Safety Report 7282294-0 (Version None)
Quarter: 2011Q1

REPORT INFORMATION
  Report Type: 
  Country: None (occurrence: None)
  Receive Date: 20110125
  Receipt Date: 20110110
  Transmission Date: 20110831
  Serious: Yes (Hospitalization, Other)
  Sender: FDA-Public Use
  Company Number: AUR-APL-2009-01363

PATIENT
  Age: 75 Year
  Sex: Female

DRUGS (8)
  1. LISINOPRIL [Suspect]
  2. CARVEDILOL [Suspect]
  3. LOVENOX [Suspect]
  4. LIPITOR [Suspect]
  5. MULTAQ [Suspect]
     Dosage: 4 TABLETS - BID
  6. LASIX [Suspect]
     Indication: DIURETIC THERAPY
     Dosage: 40MG - DAILY - ORAL
     Route: 048
  7. PREMARIN [Suspect]
  8. COUMADIN [Suspect]

REACTIONS (4)
  - ATRIAL FIBRILLATION [None]
  - INJECTION SITE PAIN [None]
  - CARDIAC FAILURE CONGESTIVE [None]
  - INJECTION SITE HAEMATOMA [None]
